FAERS Safety Report 12061079 (Version 2)
Quarter: 2016Q1

REPORT INFORMATION
  Report Type: Spontaneous
  Country: US (occurrence: US)
  Receive Date: 20160210
  Receipt Date: 20160304
  Transmission Date: 20160526
  Serious: Yes (Hospitalization)
  Sender: FDA-Public Use
  Company Number: US-BAUSCH-BL-2016-002404

PATIENT
  Age: 82 Year
  Sex: Male
  Weight: 80.18 kg

DRUGS (2)
  1. PROVENGE [Suspect]
     Active Substance: SIPULEUCEL-T
     Indication: PROSTATE CANCER
     Route: 042
     Dates: start: 20160118, end: 20160118
  2. PROVENGE [Suspect]
     Active Substance: SIPULEUCEL-T
     Route: 042
     Dates: start: 20160215, end: 20160215

REACTIONS (1)
  - Urinary tract stoma complication [Recovered/Resolved]

NARRATIVE: CASE EVENT DATE: 20160124
